FAERS Safety Report 9028961 (Version 1)
Quarter: 2013Q1

REPORT INFORMATION
  Report Type: Spontaneous
  Country: ES (occurrence: ES)
  Receive Date: 20130124
  Receipt Date: 20130124
  Transmission Date: 20140127
  Serious: Yes (Hospitalization)
  Sender: FDA-Public Use
  Company Number: ES-AMGEN-ESPSP2013005187

PATIENT
  Age: 66 Year
  Sex: Male

DRUGS (4)
  1. ENBREL [Suspect]
     Indication: PSORIATIC ARTHROPATHY
     Dosage: 12.5 MG, 2X/WEEK
     Route: 058
     Dates: start: 1999, end: 20120502
  2. RESOCHIN [Suspect]
     Indication: COLLAGEN DISORDER
     Dosage: 155 MG, 1X/DAY
     Route: 048
     Dates: start: 2012
  3. CEMIDON [Suspect]
     Dosage: UNK
     Route: 048
     Dates: start: 2012, end: 20120502
  4. METOJECT [Interacting]
     Indication: PSORIATIC ARTHROPATHY
     Dosage: 7.5 MG, WEEKLY
     Route: 058
     Dates: start: 1999

REACTIONS (2)
  - Drug interaction [Unknown]
  - Peripheral sensory neuropathy [Unknown]
